FAERS Safety Report 8921963 (Version 1)
Quarter: 2012Q4

REPORT INFORMATION
  Report Type: Spontaneous
  Country: US (occurrence: None)
  Receive Date: 20121119
  Receipt Date: 20121119
  Transmission Date: 20130627
  Serious: No
  Sender: FDA-Public Use
  Company Number: None

PATIENT
  Age: 50 Year
  Sex: Female

DRUGS (1)
  1. PAROXETINE [Suspect]
     Dosage: 20mg daily po
     Route: 048
     Dates: start: 20120320, end: 20121112

REACTIONS (2)
  - Headache [None]
  - Product substitution issue [None]
